FAERS Safety Report 8187134 (Version 3)
Quarter: 2015Q3

REPORT INFORMATION
  Report Type: Spontaneous
  Country: US (occurrence: US)
  Receive Date: 20111018
  Receipt Date: 20150805
  Transmission Date: 20151125
  Serious: Yes (Hospitalization, Other)
  Sender: FDA-Public Use
  Company Number: US-ASTRAZENECA-2011SE42872

PATIENT
  Age: 38 Year
  Sex: Female
  Weight: 102.1 kg

DRUGS (12)
  1. VENTOLIN [Concomitant]
     Active Substance: ALBUTEROL SULFATE
     Indication: CHRONIC OBSTRUCTIVE PULMONARY DISEASE
     Dosage: 90, 2 PUFFS THREE TIMES A DAY, AS REQUIRED
     Route: 055
  2. SYMBICORT [Suspect]
     Active Substance: BUDESONIDE\FORMOTEROL FUMARATE DIHYDRATE
     Indication: ASTHMA
     Dosage: 320 MCG  TWO PUFFS TWO TIMES A DAY
     Route: 055
     Dates: start: 2006, end: 201204
  3. SYMBICORT [Suspect]
     Active Substance: BUDESONIDE\FORMOTEROL FUMARATE DIHYDRATE
     Indication: CHRONIC OBSTRUCTIVE PULMONARY DISEASE
     Dosage: TWO PUFFS TWO TIMES A DAY
     Route: 055
     Dates: start: 2010
  4. VENTOLIN [Concomitant]
     Active Substance: ALBUTEROL SULFATE
     Indication: ASTHMA
     Dosage: 90, 2 PUFFS THREE TIMES A DAY, AS REQUIRED
     Route: 055
  5. SYMBICORT [Suspect]
     Active Substance: BUDESONIDE\FORMOTEROL FUMARATE DIHYDRATE
     Indication: CHRONIC OBSTRUCTIVE PULMONARY DISEASE
     Dosage: 320 MCG  TWO PUFFS TWO TIMES A DAY
     Route: 055
     Dates: start: 2006, end: 201204
  6. SYMBICORT [Suspect]
     Active Substance: BUDESONIDE\FORMOTEROL FUMARATE DIHYDRATE
     Indication: CHRONIC OBSTRUCTIVE PULMONARY DISEASE
     Dosage: 160 TWO PUFFS TWO TIMES A DAY
     Route: 055
     Dates: start: 201204, end: 201304
  7. SYMBICORT [Suspect]
     Active Substance: BUDESONIDE\FORMOTEROL FUMARATE DIHYDRATE
     Indication: ASTHMA
     Dosage: 160 TWO PUFFS TWO TIMES A DAY
     Route: 055
     Dates: start: 201204, end: 201304
  8. SYMBICORT [Suspect]
     Active Substance: BUDESONIDE\FORMOTEROL FUMARATE DIHYDRATE
     Indication: CHRONIC OBSTRUCTIVE PULMONARY DISEASE
     Dosage: 320 MCG  TWO PUFFS TWO TIMES A DAY
     Route: 055
     Dates: start: 201304, end: 201312
  9. PREDNISONE. [Concomitant]
     Active Substance: PREDNISONE
  10. SYMBICORT [Suspect]
     Active Substance: BUDESONIDE\FORMOTEROL FUMARATE DIHYDRATE
     Indication: ASTHMA
     Dosage: TWO PUFFS TWO TIMES A DAY
     Route: 055
     Dates: start: 2010
  11. SYMBICORT [Suspect]
     Active Substance: BUDESONIDE\FORMOTEROL FUMARATE DIHYDRATE
     Indication: ASTHMA
     Dosage: 320 MCG  TWO PUFFS TWO TIMES A DAY
     Route: 055
     Dates: start: 201304, end: 201312
  12. TRAMADOL. [Concomitant]
     Active Substance: TRAMADOL
     Indication: PAIN IN EXTREMITY
     Dates: start: 201308

REACTIONS (8)
  - Limb injury [Unknown]
  - Wheezing [Not Recovered/Not Resolved]
  - Drug dose omission [Not Recovered/Not Resolved]
  - Dyspnoea [Not Recovered/Not Resolved]
  - Weight decreased [Unknown]
  - Influenza [Recovered/Resolved with Sequelae]
  - Feeling abnormal [Not Recovered/Not Resolved]
  - Intentional product use issue [Unknown]

NARRATIVE: CASE EVENT DATE: 2006
